FAERS Safety Report 6724843-4 (Version None)
Quarter: 2010Q2

REPORT INFORMATION
  Report Type: 
  Country: None (occurrence: None)
  Receive Date: 20100513
  Receipt Date: 20100513
  Transmission Date: 20101027
  Serious: Yes (Other)
  Sender: FDA-Public Use
  Company Number: None

PATIENT
  Sex: Male
  Weight: 68.0396 kg

DRUGS (1)
  1. SOLODYN [Suspect]
     Indication: ACNE
     Dosage: 115MG DAILY PO
     Route: 048
     Dates: start: 20100414, end: 20100427

REACTIONS (8)
  - ARTHRALGIA [None]
  - CHILLS [None]
  - GAIT DISTURBANCE [None]
  - JOINT SWELLING [None]
  - MYALGIA [None]
  - SERUM SICKNESS [None]
  - SWELLING [None]
  - URTICARIA [None]
